FAERS Safety Report 18580223 (Version 1)
Quarter: 2020Q4

REPORT INFORMATION
  Report Type: Spontaneous
  Country: TR (occurrence: TR)
  Receive Date: 20201204
  Receipt Date: 20201204
  Transmission Date: 20210114
  Serious: No
  Sender: FDA-Public Use
  Company Number: TR-LUPIN PHARMACEUTICALS INC.-2020-09649

PATIENT
  Sex: Male

DRUGS (5)
  1. AMOXICILLIN. [Suspect]
     Active Substance: AMOXICILLIN
     Indication: HELICOBACTER GASTRITIS
     Dosage: 50 MILLIGRAM/KILOGRAM, QD, ADMINISTERED IN TWO DOSES; MAXIMUM 2X1000MG
     Route: 065
  2. LANSOPRAZOLE. [Suspect]
     Active Substance: LANSOPRAZOLE
     Indication: HELICOBACTER GASTRITIS
     Dosage: 1 MILLIGRAM/KILOGRAM, QD, DOSAGE: MAXIMUM 30MG DAILY
     Route: 065
  3. TETRACYCLINE [Suspect]
     Active Substance: TETRACYCLINE
     Indication: HELICOBACTER GASTRITIS
     Dosage: 50 MILLIGRAM/KILOGRAM, QD, ADMINISTERED BY DIVIDING IN FOUR EQUAL DOSES FROM DAY 8 TO DAY 14; MAXIMU
     Route: 065
  4. METRONIDAZOLE. [Suspect]
     Active Substance: METRONIDAZOLE
     Indication: HELICOBACTER GASTRITIS
     Dosage: 20 MILLIGRAM/KILOGRAM, QD, ADMINISTERED IN TWO DOSES FROM DAY 8 TO DAY 14; MAXIMUM 2X500MG
     Route: 065
  5. BISMUTH SUBSALICYLATE. [Suspect]
     Active Substance: BISMUTH SUBSALICYLATE
     Indication: HELICOBACTER GASTRITIS
     Dosage: UNK, QID, ADMINISTERED FOUR TIMES A DAY ON DAY 8 TO DAY 14
     Route: 065

REACTIONS (1)
  - Urticaria [Unknown]
